FAERS Safety Report 24650835 (Version 1)
Quarter: 2024Q4

REPORT INFORMATION
  Report Type: Report from Study
  Country: CA (occurrence: CA)
  Receive Date: 20241122
  Receipt Date: 20241122
  Transmission Date: 20250114
  Serious: Yes (Other)
  Sender: ABBVIE
  Company Number: CA-ABBVIE-6010646

PATIENT
  Sex: Female

DRUGS (1)
  1. SKYRIZI [Suspect]
     Active Substance: RISANKIZUMAB-RZAA
     Indication: Crohn^s disease
     Dosage: LAST INJECTION ON 21 OCT 2024
     Route: 058
     Dates: start: 20231214

REACTIONS (6)
  - Stenosis [Unknown]
  - Mouth ulceration [Unknown]
  - Abdominal pain [Unknown]
  - Diarrhoea [Recovered/Resolved]
  - Therapeutic response shortened [Unknown]
  - Stoma creation [Unknown]

NARRATIVE: CASE EVENT DATE: 20240901
